FAERS Safety Report 13837523 (Version 1)
Quarter: 2017Q3

REPORT INFORMATION
  Report Type: Other
  Country: GB (occurrence: CN)
  Receive Date: 20170804
  Receipt Date: 20170804
  Transmission Date: 20171127
  Serious: Yes (Death, Life-Threatening)
  Sender: FDA-Public Use
  Company Number: CN-INTERNATIONAL MEDICATION SYSTEMS, LIMITED-2024193

PATIENT
  Age: 60 Year
  Sex: Male

DRUGS (3)
  1. EPINEPHRINE. [Suspect]
     Active Substance: EPINEPHRINE
     Indication: VENTRICULAR ARRHYTHMIA
  2. DOPAMINE [Suspect]
     Active Substance: DOPAMINE\DOPAMINE HYDROCHLORIDE
  3. NOREPINEPHRINE. [Suspect]
     Active Substance: NOREPINEPHRINE

REACTIONS (2)
  - Death [Fatal]
  - Drug ineffective [Fatal]
